FAERS Safety Report 5150748-9 (Version None)
Quarter: 2006Q4

REPORT INFORMATION
  Report Type: 
  Country: None (occurrence: None)
  Receive Date: 20061108
  Receipt Date: 20061027
  Transmission Date: 20070319
  Serious: Yes (Death, Life-Threatening, Hospitalization)
  Sender: FDA-Public Use
  Company Number: 2005EU002137

PATIENT
  Age: 64 Year
  Sex: Male

DRUGS (8)
  1. FK506 (TACROLIMUS) CAPSULE [Suspect]
     Indication: LIVER TRANSPLANT
     Dosage: 4 MG, UID/QD, ORAL
     Route: 048
     Dates: start: 20050616, end: 20050920
  2. MYCOPHENOLATE MOFETIL [Suspect]
     Indication: LIVER TRANSPLANT
     Dosage: SEE IMAGE
     Route: 042
     Dates: start: 20050616, end: 20050616
  3. MYCOPHENOLATE MOFETIL [Suspect]
     Indication: LIVER TRANSPLANT
     Dosage: SEE IMAGE
     Route: 042
     Dates: start: 20050619, end: 20050822
  4. METHYLPREDNISOLONE [Suspect]
     Indication: LIVER TRANSPLANT
     Dosage: 30 MG, UID/QD,
     Dates: start: 20050615, end: 20050911
  5. PREDNISONE TAB [Suspect]
     Indication: LIVER TRANSPLANT
     Dosage: 10 MG, UID/QD,
     Dates: start: 20050621, end: 20050925
  6. BUDESONIDE [Concomitant]
  7. INSULIN HUMAN (INSULIN HUMAN) [Concomitant]
  8. ESOMEPRAZOLE (ESOMEPRAZOLE) [Concomitant]

REACTIONS (13)
  - ASCITES [None]
  - CARDIOVASCULAR INSUFFICIENCY [None]
  - DISEASE RECURRENCE [None]
  - ENCEPHALOPATHY [None]
  - GASTROINTESTINAL DISORDER [None]
  - GENERAL PHYSICAL HEALTH DETERIORATION [None]
  - GENERALISED OEDEMA [None]
  - HEPATITIS C [None]
  - LIVER TRANSPLANT REJECTION [None]
  - MALNUTRITION [None]
  - MULTI-ORGAN FAILURE [None]
  - RENAL FAILURE [None]
  - WEIGHT DECREASED [None]
